FAERS Safety Report 10245048 (Version 1)
Quarter: 2014Q2

REPORT INFORMATION
  Report Type: Spontaneous
  Country: US (occurrence: US)
  Receive Date: 20140618
  Receipt Date: 20140618
  Transmission Date: 20141212
  Serious: No
  Sender: FDA-Public Use
  Company Number: US-GALDERMA-US14001171

PATIENT
  Age: 61 Year
  Sex: Female

DRUGS (10)
  1. MIRVASO (BRIMONIDINE) TOPICAL GEL, 0.33% [Suspect]
     Indication: ROSACEA
     Dosage: 0.33%
     Route: 061
     Dates: start: 20140106, end: 201402
  2. MIRVASO (BRIMONIDINE) TOPICAL GEL, 0.33% [Suspect]
     Dosage: 0.33%
     Route: 061
     Dates: end: 20140228
  3. METROGEL  (METRONIDAZOLE) GEL, 1% [Concomitant]
     Indication: ROSACEA
     Dosage: 1%
     Route: 061
     Dates: start: 2009
  4. CETAPHIL GENTLE SKIN CLEANSER [Concomitant]
     Indication: THERAPEUTIC SKIN CARE TOPICAL
     Route: 061
     Dates: start: 2004
  5. CETAPHIL ANTIBACTERIAL GENTLE CLEANSING BAR [Concomitant]
     Indication: THERAPEUTIC SKIN CARE TOPICAL
     Route: 061
     Dates: start: 2004
  6. CETAPHIL DAILY ADVANCE ULTRA HYDRATING LOTION [Concomitant]
     Indication: DRY SKIN PROPHYLAXIS
     Route: 061
     Dates: start: 2004
  7. NEUTROGENA POWDER WITH 85 SPF [Concomitant]
     Indication: THERAPEUTIC SKIN CARE TOPICAL
     Route: 061
     Dates: start: 2004
  8. NEUTROGENIA HELIOPLEX SUPERIOR BROAD SPECTRUM UAA-UVB PROTECTION [Concomitant]
     Indication: PROPHYLAXIS AGAINST SOLAR RADIATION
     Route: 061
  9. DOXYCYCLINE MONOHYDRATE [Concomitant]
     Indication: OCULAR ROSACEA
     Dosage: 50 MG
     Route: 048
     Dates: start: 201401
  10. NEO POLY DEX 1% OPHTHALMIC OINTMENT [Concomitant]
     Indication: OCULAR ROSACEA
     Route: 061

REACTIONS (2)
  - Erythema [Recovered/Resolved]
  - Inappropriate schedule of drug administration [Recovered/Resolved]
